FAERS Safety Report 6260387-4 (Version None)
Quarter: 2009Q3

REPORT INFORMATION
  Report Type: 
  Country: None (occurrence: None)
  Receive Date: 20090706
  Receipt Date: 20090625
  Transmission Date: 20100115
  Serious: Yes (Hospitalization)
  Sender: FDA-Public Use
  Company Number: 1-18958092

PATIENT
  Sex: Female

DRUGS (3)
  1. PHENYTOIN [Suspect]
     Indication: GRAND MAL CONVULSION
     Dosage: 600 MG DAILY, ORAL
     Route: 048
  2. VALPROATE SODIUM [Suspect]
     Indication: GRAND MAL CONVULSION
     Dosage: 1 G DAILY, ORAL
     Route: 048
  3. CLONAZEPAM [Concomitant]

REACTIONS (19)
  - AMYOTROPHIC LATERAL SCLEROSIS [None]
  - ANTICONVULSANT DRUG LEVEL INCREASED [None]
  - ASPIRATION [None]
  - ASTHENIA [None]
  - CRANIAL NERVE DISORDER [None]
  - DENERVATION ATROPHY [None]
  - DIPLOPIA [None]
  - DRUG TOXICITY [None]
  - DYSARTHRIA [None]
  - DYSPHAGIA [None]
  - GAIT DISTURBANCE [None]
  - HEPATIC STEATOSIS [None]
  - HYPERREFLEXIA [None]
  - HYPOALBUMINAEMIA [None]
  - MALNUTRITION [None]
  - MOBILITY DECREASED [None]
  - MUSCLE CONTRACTIONS INVOLUNTARY [None]
  - PULMONARY SEPSIS [None]
  - WEIGHT DECREASED [None]
